FAERS Safety Report 8181027-3 (Version None)
Quarter: 2012Q1

REPORT INFORMATION
  Report Type: 
  Country: None (occurrence: None)
  Receive Date: 20120302
  Receipt Date: 20120227
  Transmission Date: 20120608
  Serious: Yes (Other)
  Sender: FDA-Public Use
  Company Number: BR-PFIZER INC-2012051250

PATIENT
  Age: 46 Year
  Sex: Male
  Weight: 1.65 kg

DRUGS (4)
  1. ASPIRIN [Concomitant]
     Indication: ANTIPLATELET THERAPY
     Dosage: UNK
     Dates: start: 20110101
  2. ALPRAZOLAM [Suspect]
     Indication: DEPRESSION
     Dosage: 1 TABLET OF 2 MG, 2X/DAY
     Route: 048
     Dates: start: 20000101
  3. ALPRAZOLAM [Concomitant]
     Indication: DEPRESSION
     Dosage: UNK
     Dates: start: 20000101
  4. SERTRALINE [Concomitant]
     Indication: DEPRESSION
     Dosage: UNK
     Dates: start: 20000101

REACTIONS (7)
  - FATIGUE [None]
  - PAIN IN EXTREMITY [None]
  - BLOOD CHOLESTEROL INCREASED [None]
  - HYPERTENSION [None]
  - TYPE 2 DIABETES MELLITUS [None]
  - GAIT DISTURBANCE [None]
  - PAIN [None]
